FAERS Safety Report 5690413-2 (Version None)
Quarter: 2008Q1

REPORT INFORMATION
  Report Type: 
  Country: None (occurrence: None)
  Receive Date: 20080331
  Receipt Date: 20080331
  Transmission Date: 20080703
  Serious: Yes (Other)
  Sender: FDA-Public Use
  Company Number: None

PATIENT
  Age: 62 Year
  Sex: Female
  Weight: 61.2356 kg

DRUGS (1)
  1. RECLAST [Suspect]
     Indication: OSTEOPOROSIS
     Dosage: 5MG ONCE IV DRIP
     Route: 041
     Dates: start: 20080305, end: 20080305

REACTIONS (5)
  - ARTHRALGIA [None]
  - BURNING SENSATION [None]
  - ELECTROCARDIOGRAM T WAVE ABNORMAL [None]
  - INFUSION RELATED REACTION [None]
  - MYOCARDIAL ISCHAEMIA [None]
